FAERS Safety Report 24192192 (Version 2)
Quarter: 2024Q3

REPORT INFORMATION
  Report Type: Spontaneous
  Country: DK (occurrence: DK)
  Receive Date: 20240809
  Receipt Date: 20240814
  Transmission Date: 20241016
  Serious: Yes (Life-Threatening, Hospitalization)
  Sender: ROCHE
  Company Number: None

PATIENT
  Age: 64 Year
  Sex: Female
  Weight: 91 kg

DRUGS (10)
  1. ALTEPLASE [Suspect]
     Active Substance: ALTEPLASE
     Indication: Respiratory disorder
     Dosage: DOSAGE: ADMINISTERED INTRAPLEURALLY IN ISOTONIC SALINE (NACL) 0.3333 MG/ML INFUSION. ADMINISTERED SI
     Route: 034
     Dates: start: 20240417, end: 20240418
  2. PULMOZYME [Suspect]
     Active Substance: DORNASE ALFA
     Indication: Respiratory disorder
     Dosage: DOSAGE: ADMINISTERED INTRAPLEURALLY IN ISOTONIC SALINE (NACL) INFUSION. ADMINISTRERED SIMULTANEOUSLY
     Route: 034
     Dates: start: 20240417, end: 20240418
  3. SIMVASTATINUM [Concomitant]
     Indication: Hypercholesterolaemia
     Dates: start: 2022
  4. ANORO ELLIPTA [Concomitant]
     Active Substance: UMECLIDINIUM BROMIDE\VILANTEROL TRIFENATATE
     Indication: Chronic obstructive pulmonary disease
     Dosage: STRENGTH: 55 MCG / 22 MCG INAHALATION POWDER, PREDISPENSED
     Dates: start: 20240220
  5. METOPROLOL SUCCINATE [Concomitant]
     Active Substance: METOPROLOL SUCCINATE
     Indication: Heart rate irregular
     Dates: start: 2023
  6. LERCANIDIPINE [Concomitant]
     Active Substance: LERCANIDIPINE
     Indication: Hypertension
     Dates: start: 2022
  7. DOXAZOSIN [Concomitant]
     Active Substance: DOXAZOSIN MESYLATE
     Indication: Hypertension
     Dates: start: 20231123
  8. APIXABAN [Concomitant]
     Active Substance: APIXABAN
     Indication: Thrombosis prophylaxis
     Dates: start: 2022
  9. HYDROCHLOROTHIAZIDE\TELMISARTAN [Concomitant]
     Active Substance: HYDROCHLOROTHIAZIDE\TELMISARTAN
     Indication: Hypertension
     Dosage: STRENGTH: 80 MG + 12.5 MG
     Dates: start: 2022
  10. FLECAINIDI ACETAS [Concomitant]
     Indication: Heart rate irregular
     Dates: start: 2022

REACTIONS (3)
  - Hypotension [Recovering/Resolving]
  - Oliguria [Unknown]
  - Thoracic cavity drainage test abnormal [Recovered/Resolved]

NARRATIVE: CASE EVENT DATE: 20240418
